FAERS Safety Report 10898208 (Version 1)
Quarter: 2015Q1

REPORT INFORMATION
  Report Type: Report from Study
  Country: US (occurrence: US)
  Receive Date: 20150309
  Receipt Date: 20150309
  Transmission Date: 20150721
  Serious: No
  Sender: FDA-Public Use
  Company Number: US-ABBVIE-14P-163-1311823-00

PATIENT
  Age: 48 Year
  Sex: Female

DRUGS (4)
  1. NORETHINDRONE ACETATE. [Concomitant]
     Active Substance: NORETHINDRONE ACETATE
     Indication: ENDOMETRIOSIS
     Route: 065
     Dates: start: 20141120
  2. FENOFIBRATE. [Concomitant]
     Active Substance: FENOFIBRATE
     Indication: PRODUCT USED FOR UNKNOWN INDICATION
  3. LUPRON DEPOT [Suspect]
     Active Substance: LEUPROLIDE ACETATE
     Indication: ENDOMETRIOSIS
     Route: 050
     Dates: start: 20141120
  4. TRAZODONE [Concomitant]
     Active Substance: TRAZODONE HYDROCHLORIDE
     Indication: PRODUCT USED FOR UNKNOWN INDICATION

REACTIONS (1)
  - Pain [Not Recovered/Not Resolved]

NARRATIVE: CASE EVENT DATE: 20141121
